FAERS Safety Report 10256732 (Version 1)
Quarter: 2014Q2

REPORT INFORMATION
  Report Type: Report from Study
  Country: DE (occurrence: DE)
  Receive Date: 20140624
  Receipt Date: 20140624
  Transmission Date: 20141212
  Serious: Yes (Hospitalization)
  Sender: FDA-Public Use
  Company Number: DE-JNJFOC-20131100927

PATIENT
  Age: 84 Year
  Sex: Female
  Weight: 73 kg

DRUGS (11)
  1. XARELTO [Suspect]
     Indication: EMBOLISM VENOUS
     Route: 048
     Dates: start: 20130725, end: 20130923
  2. XARELTO [Suspect]
     Indication: EMBOLISM VENOUS
     Route: 048
     Dates: start: 20130704, end: 20130724
  3. XARELTO [Suspect]
     Indication: EMBOLISM VENOUS
     Route: 048
     Dates: start: 20130924
  4. XARELTO [Suspect]
     Indication: DEEP VEIN THROMBOSIS
     Route: 048
     Dates: start: 20130704, end: 20130724
  5. XARELTO [Suspect]
     Indication: DEEP VEIN THROMBOSIS
     Route: 048
     Dates: start: 20130924
  6. XARELTO [Suspect]
     Indication: DEEP VEIN THROMBOSIS
     Route: 048
     Dates: start: 20130725, end: 20130923
  7. TORSEMIDE [Concomitant]
     Route: 065
  8. PRAVASTATIN [Concomitant]
     Route: 065
     Dates: start: 2008
  9. METOPROLOL [Concomitant]
     Route: 065
     Dates: start: 2008
  10. METOPROLOL [Concomitant]
     Route: 065
     Dates: start: 2008
  11. ENALAPRIL [Concomitant]
     Route: 065
     Dates: start: 2008

REACTIONS (2)
  - Hypertensive crisis [Recovered/Resolved]
  - Alopecia [Not Recovered/Not Resolved]
